FAERS Safety Report 5819578-6 (Version None)
Quarter: 2008Q3

REPORT INFORMATION
  Report Type: 
  Country: None (occurrence: None)
  Receive Date: 20080717
  Receipt Date: 20080714
  Transmission Date: 20090109
  Serious: Yes (Hospitalization)
  Sender: FDA-Public Use
  Company Number: 6044269

PATIENT
  Age: 81 Year
  Sex: Female

DRUGS (20)
  1. EMCONCOR (FILM-COATED TABLET) (BISOPROLOL FUMARATE) [Suspect]
     Indication: ESSENTIAL HYPERTENSION
     Dosage: 5 MG (5MG); ORAL
     Route: 048
  2. ZOLPIDEM ACTAVIS (ZOLPIDEM) [Concomitant]
  3. ENALAPRIL ACTAVIS (ENALAPRIL) [Concomitant]
  4. OMEPRAZOL ABCUR (OMEPRAZOLE) [Concomitant]
  5. HYDROKORTISON NYCOMED (HYDROCORTISONE) [Concomitant]
  6. ALENAT (ALENDRONATE SODIUM) [Concomitant]
  7. NULYTELY [Concomitant]
  8. SIMVASTATIN ACTAVIS (SIMVASTATIN) [Concomitant]
  9. LEVOTHYROXINE SODIUM [Concomitant]
  10. ACETYLCYSTEIN ALTERNOVA (ACETYLCYSTEINE) [Concomitant]
  11. NITROMEX (GLYCERYL TRINITRATE) [Concomitant]
  12. ACETAMINOPHEN [Concomitant]
  13. PROPAVAN (PROPIOMAZINE MALEATE) [Concomitant]
  14. FLORINEF [Concomitant]
  15. OXAZEPAM [Concomitant]
  16. DIGOXIN ASTRAZENECA (DIGOXIN) [Concomitant]
  17. GAVISCON (SODIUM BICARBONATE, ALUMINIUM HYDROXIDE GEL, DRIED, ALGINIC [Concomitant]
  18. KALIUM RETARD NYCOMED (POTASSIUM CHLORIDE) [Concomitant]
  19. DEXOFEN (DEXTROPROPOXYPHENE NAPSILATE) [Concomitant]
  20. CALCIHEW-D3 (COLECALCIFEROL, CALCIUM CARBONATE) [Concomitant]

REACTIONS (2)
  - BRADYCARDIA [None]
  - CONVULSION [None]
